FAERS Safety Report 6721642-4 (Version None)
Quarter: 2010Q2

REPORT INFORMATION
  Report Type: 
  Country: None (occurrence: None)
  Receive Date: 20100512
  Receipt Date: 20100430
  Transmission Date: 20101027
  Serious: Yes (Hospitalization, Other)
  Sender: FDA-Public Use
  Company Number: PHHY2010FR28190

PATIENT
  Sex: Male

DRUGS (3)
  1. VOLTAREN [Suspect]
     Route: 048
  2. THIOCOLCHICOSIDE [Concomitant]
  3. DI-ANTALVIC [Concomitant]

REACTIONS (6)
  - ABDOMINAL PAIN [None]
  - C-REACTIVE PROTEIN INCREASED [None]
  - COLITIS [None]
  - DIARRHOEA [None]
  - INTENTIONAL DRUG MISUSE [None]
  - PYREXIA [None]
